FAERS Safety Report 7353709-4 (Version None)
Quarter: 2011Q1

REPORT INFORMATION
  Report Type: 
  Country: None (occurrence: None)
  Receive Date: 20110303
  Receipt Date: 20101019
  Transmission Date: 20110831
  Serious: Yes (Hospitalization)
  Sender: FDA-Public Use
  Company Number: WAES 1010USA02211

PATIENT
  Age: 48 Year
  Sex: Female

DRUGS (7)
  1. ACTONEL [Concomitant]
  2. ONGLYZA [Suspect]
     Indication: PRODUCT USED FOR UNKNOWN INDICATION
     Dosage: 2.5 MG/PO
     Route: 048
     Dates: start: 20100707
  3. AMLODIPINE [Concomitant]
  4. SPIRONOLACTONE [Concomitant]
  5. PRINIVIL [Suspect]
     Indication: PRODUCT USED FOR UNKNOWN INDICATION
     Dosage: PO
     Route: 048
  6. FUROSEMIDE [Concomitant]
  7. INSULIN [Concomitant]

REACTIONS (1)
  - RENAL FAILURE [None]
